FAERS Safety Report 19630974 (Version 1)
Quarter: 2021Q3

REPORT INFORMATION
  Report Type: Spontaneous
  Country: US (occurrence: US)
  Receive Date: 20210728
  Receipt Date: 20210728
  Transmission Date: 20211014
  Serious: No
  Sender: FDA-Public Use
  Company Number: US-SA-2021SA247360

PATIENT
  Sex: Female

DRUGS (4)
  1. DUPIXENT [Suspect]
     Active Substance: DUPILUMAB
     Indication: DERMATITIS ATOPIC
     Dosage: 300 MG, QOW
     Route: 058
  2. MULTIVITAMIN FOR WOMEN [Concomitant]
     Active Substance: MINERALS\VITAMINS
     Dosage: 10 MG, QOW
  3. CETIRIZINE HCL [Concomitant]
     Active Substance: CETIRIZINE HYDROCHLORIDE
     Dosage: UNK
  4. DUPIXENT [Suspect]
     Active Substance: DUPILUMAB
     Indication: RHINITIS ALLERGIC

REACTIONS (2)
  - Hypersensitivity [Unknown]
  - Product use in unapproved indication [Unknown]
